FAERS Safety Report 4729413-5 (Version None)
Quarter: 2005Q3

REPORT INFORMATION
  Report Type: 
  Country: None (occurrence: None)
  Receive Date: 20050728
  Receipt Date: 20050715
  Transmission Date: 20060218
  Serious: Yes (Disabling, Other)
  Sender: FDA-Public Use
  Company Number: 2005103670

PATIENT
  Sex: Male
  Weight: 95.2554 kg

DRUGS (4)
  1. TIKOSYN [Suspect]
     Indication: ATRIAL FIBRILLATION
     Dosage: 250 MCG (125 MCG, 2 IN 1 D), ORAL
     Route: 048
  2. NORVASC [Concomitant]
  3. COUMADIN [Concomitant]
  4. VITAMIN B6 [Concomitant]

REACTIONS (3)
  - ARTHROPATHY [None]
  - CHONDROPATHY [None]
  - CONDITION AGGRAVATED [None]
